FAERS Safety Report 14261714 (Version 1)
Quarter: 2017Q4

REPORT INFORMATION
  Report Type: Spontaneous
  Country: US (occurrence: US)
  Receive Date: 20171128
  Receipt Date: 20171128
  Transmission Date: 20180321
  Serious: Yes (Other)
  Sender: FDA-Public Use
  Company Number: None

PATIENT
  Age: 50 Year
  Sex: Female
  Weight: 74.25 kg

DRUGS (12)
  1. HYDROCODONE 10-325 [Suspect]
     Active Substance: ACETAMINOPHEN\HYDROCODONE BITARTRATE
     Indication: PAIN
     Dosage: ?          QUANTITY:180 CAPSULE(S);?
     Route: 048
     Dates: start: 20171122
  2. CLOBETASOL [Concomitant]
     Active Substance: CLOBETASOL
  3. HIBICLENS [Concomitant]
     Active Substance: CHLORHEXIDINE GLUCONATE
  4. REMICADE [Concomitant]
     Active Substance: INFLIXIMAB
  5. VOLTAREN [Concomitant]
     Active Substance: DICLOFENAC SODIUM
  6. CYTOXAN [Concomitant]
     Active Substance: CYCLOPHOSPHAMIDE
  7. IMURAN [Concomitant]
     Active Substance: AZATHIOPRINE
  8. DUREZOL [Concomitant]
     Active Substance: DIFLUPREDNATE
  9. NEOSPORIN [Concomitant]
     Active Substance: BACITRACIN ZINC\NEOMYCIN SULFATE\POLYMYXIN B SULFATE
  10. ALPHAGAM [Concomitant]
  11. OZURDEX [Concomitant]
     Active Substance: DEXAMETHASONE
  12. HYDROCODONE 10-325 [Suspect]
     Active Substance: ACETAMINOPHEN\HYDROCODONE BITARTRATE
     Indication: BEHCET^S SYNDROME
     Dosage: ?          QUANTITY:180 CAPSULE(S);?
     Route: 048
     Dates: start: 20171122

REACTIONS (7)
  - Insomnia [None]
  - Product substitution issue [None]
  - Headache [None]
  - Condition aggravated [None]
  - Agitation [None]
  - Product quality issue [None]
  - Breakthrough pain [None]

NARRATIVE: CASE EVENT DATE: 20171124
